FAERS Safety Report 5843041-X (Version None)
Quarter: 2008Q3

REPORT INFORMATION
  Report Type: 
  Country: None (occurrence: None)
  Receive Date: 20080808
  Receipt Date: 20080729
  Transmission Date: 20090109
  Serious: Yes (Death, Life-Threatening, Disabling, Other)
  Sender: FDA-Public Use
  Company Number: 2008-01013

PATIENT
  Age: 72 Year
  Sex: Female
  Weight: 49 kg

DRUGS (3)
  1. VELCADE [Suspect]
     Indication: MULTIPLE MYELOMA
     Dosage: 1.30 MG/M2 UNK INTRAVENOUS
     Route: 042
     Dates: start: 20080208, end: 20080317
  2. DECADRON [Concomitant]
  3. RED BLOOD CELLS [Concomitant]

REACTIONS (7)
  - ANAEMIA [None]
  - CARDIAC FAILURE CONGESTIVE [None]
  - CARDIOGENIC SHOCK [None]
  - DIARRHOEA [None]
  - HYPERGLYCAEMIA [None]
  - HYPOAESTHESIA [None]
  - PLATELET COUNT DECREASED [None]
